FAERS Safety Report 8508250-X (Version None)
Quarter: 2012Q3

REPORT INFORMATION
  Report Type: 
  Country: None (occurrence: None)
  Receive Date: 20120713
  Receipt Date: 20120702
  Transmission Date: 20120928
  Serious: Yes (Other)
  Sender: FDA-Public Use
  Company Number: PL-BRISTOL-MYERS SQUIBB COMPANY-16730228

PATIENT
  Sex: Female

DRUGS (1)
  1. IFOSFAMIDE [Suspect]
     Indication: NEURILEMMOMA MALIGNANT

REACTIONS (4)
  - ANAEMIA [None]
  - NEUTROPENIA [None]
  - ENCEPHALOPATHY [None]
  - THROMBOCYTOPENIA [None]
